FAERS Safety Report 10050717 (Version 1)
Quarter: 2014Q2

REPORT INFORMATION
  Report Type: Spontaneous
  Country: US (occurrence: US)
  Receive Date: 20140401
  Receipt Date: 20140401
  Transmission Date: 20141212
  Serious: No
  Sender: FDA-Public Use
  Company Number: US-ASTRAZENECA-2013SE75674

PATIENT
  Age: 61 Year
  Sex: Male
  Weight: 81.6 kg

DRUGS (4)
  1. NEXIUM [Suspect]
     Indication: GASTROOESOPHAGEAL REFLUX DISEASE
     Route: 048
     Dates: start: 2005
  2. FINASTERIDE [Concomitant]
     Indication: PROSTATIC DISORDER
     Route: 048
     Dates: start: 201307
  3. SIMVASTATIN [Concomitant]
     Indication: BLOOD CHOLESTEROL INCREASED
     Route: 048
     Dates: start: 2005
  4. ASPIRIN [Concomitant]
     Route: 048
     Dates: start: 2009

REACTIONS (4)
  - Prostatic disorder [Not Recovered/Not Resolved]
  - Blood cholesterol increased [Unknown]
  - Abdominal pain upper [Unknown]
  - Intentional product misuse [Not Recovered/Not Resolved]
